FAERS Safety Report 7434893-0 (Version None)
Quarter: 2011Q2

REPORT INFORMATION
  Report Type: 
  Country: None (occurrence: None)
  Receive Date: 20110425
  Receipt Date: 20110415
  Transmission Date: 20111010
  Serious: Yes (Other)
  Sender: FDA-Public Use
  Company Number: GB-ASTRAZENECA-2011SE16160

PATIENT
  Age: 50 Year
  Sex: Male

DRUGS (12)
  1. ACETAMINOPHEN AND CODEINE PHOSPHATE [Concomitant]
  2. IMIPRAMINE [Concomitant]
  3. AMLODIPINE [Concomitant]
  4. TRAMADOL HCL [Concomitant]
  5. ASPIRIN [Concomitant]
  6. ATENOLOL [Concomitant]
  7. ATORVASTATIN [Concomitant]
  8. NOVOMIX [Concomitant]
  9. VALSARTAN [Concomitant]
  10. OMEPRAZOLE [Suspect]
     Indication: DYSPEPSIA
     Route: 048
     Dates: start: 20090924, end: 20110116
  11. ZOLPIDEM TARTRATE [Concomitant]
  12. METFORMIN [Concomitant]

REACTIONS (1)
  - ERECTILE DYSFUNCTION [None]
